FAERS Safety Report 9279224 (Version 1)
Quarter: 2013Q2

REPORT INFORMATION
  Report Type: Spontaneous
  Country: DE (occurrence: None)
  Receive Date: 20130501
  Receipt Date: 20130501
  Transmission Date: 20140414
  Serious: Yes (Life-Threatening)
  Sender: FDA-Public Use
  Company Number: AUR-APL-2013-03434

PATIENT
  Age: 82 Year
  Sex: Female
  Weight: 93.9 kg

DRUGS (1)
  1. RAMIPRIL (RAMIPRIL) [Suspect]
     Indication: HYPERTENSION
     Route: 048
     Dates: start: 201006, end: 20130106

REACTIONS (3)
  - Lip swelling [None]
  - Swollen tongue [None]
  - Palatal oedema [None]
